FAERS Safety Report 15479090 (Version 2)
Quarter: 2018Q4

REPORT INFORMATION
  Report Type: Report from Study
  Country: US (occurrence: US)
  Receive Date: 20181009
  Receipt Date: 20181024
  Transmission Date: 20190205
  Serious: Yes (Other)
  Sender: FDA-Public Use
  Company Number: US-GILEAD-2018-0366861

PATIENT
  Age: 77 Year
  Sex: Female

DRUGS (2)
  1. BUMEX [Concomitant]
     Active Substance: BUMETANIDE
  2. AMBRISENTAN [Suspect]
     Active Substance: AMBRISENTAN
     Indication: PRODUCT USED FOR UNKNOWN INDICATION
     Dosage: 5 MG, UNK
     Route: 065
     Dates: start: 20180320

REACTIONS (6)
  - Blindness [Not Recovered/Not Resolved]
  - Deafness [Not Recovered/Not Resolved]
  - Fluid retention [Not Recovered/Not Resolved]
  - Myoclonus [Unknown]
  - Pain [Not Recovered/Not Resolved]
  - Tremor [Unknown]
